FAERS Safety Report 15986962 (Version 1)
Quarter: 2019Q1

REPORT INFORMATION
  Report Type: Report from Study
  Country: GB (occurrence: GB)
  Receive Date: 20190220
  Receipt Date: 20190220
  Transmission Date: 20190418
  Serious: Yes (Hospitalization, Other)
  Sender: FDA-Public Use
  Company Number: GB-REGENERON PHARMACEUTICALS, INC.-2018-50402

PATIENT

DRUGS (1)
  1. CEMIPLIMAB [Suspect]
     Active Substance: CEMIPLIMAB
     Indication: NEOPLASM MALIGNANT
     Dosage: UNK
     Dates: start: 20181122

REACTIONS (6)
  - Fall [Unknown]
  - Blood pressure decreased [Recovered/Resolved]
  - Necrosis [Unknown]
  - Pyrexia [Unknown]
  - Cellulitis [Unknown]
  - Skin laceration [Unknown]

NARRATIVE: CASE EVENT DATE: 20181125
